FAERS Safety Report 8241431-1 (Version None)
Quarter: 2012Q1

REPORT INFORMATION
  Report Type: 
  Country: None (occurrence: None)
  Receive Date: 20120328
  Receipt Date: 20120322
  Transmission Date: 20120608
  Serious: Yes (Life-Threatening, Hospitalization)
  Sender: FDA-Public Use
  Company Number: US-ABBOTT-12P-163-0918077-00

PATIENT
  Sex: Female
  Weight: 113.5 kg

DRUGS (15)
  1. UNKNOWN BACK INJECTIONS [Suspect]
     Indication: BACK PAIN
     Dates: start: 20090101
  2. ASPIRIN [Concomitant]
     Indication: CORONARY ARTERIAL STENT INSERTION
  3. OMEPRAZOLE [Concomitant]
     Indication: GASTRIC DISORDER
     Dates: start: 20090101
  4. PLAVIX [Concomitant]
     Indication: CORONARY ARTERIAL STENT INSERTION
  5. WELLBUTRIN [Concomitant]
     Indication: DEPRESSION
  6. ZOCOR [Concomitant]
     Indication: CARDIAC DISORDER
  7. PREDNISONE TAB [Concomitant]
     Indication: RHEUMATOID ARTHRITIS
  8. FISH OIL [Concomitant]
     Indication: SUPPLEMENTATION THERAPY
  9. HUMIRA [Suspect]
     Dates: start: 20100101
  10. OMEPRAZOLE [Concomitant]
     Indication: PROPHYLAXIS
  11. VITAMIN D [Concomitant]
     Indication: HYPOVITAMINOSIS
  12. HUMIRA [Suspect]
     Indication: RHEUMATOID ARTHRITIS
     Dates: start: 20050101, end: 20100101
  13. METFORMIN HCL [Concomitant]
     Indication: DIABETES MELLITUS
  14. LISINOPRIL [Concomitant]
     Indication: HYPERTENSION
  15. LOPRESSOR [Concomitant]
     Indication: CARDIAC DISORDER

REACTIONS (14)
  - HAND DEFORMITY [None]
  - MYOCARDIAL INFARCTION [None]
  - ABDOMINAL DISTENSION [None]
  - WOUND INFECTION STAPHYLOCOCCAL [None]
  - PANCREATITIS [None]
  - ANAEMIA [None]
  - INAPPROPRIATE SCHEDULE OF DRUG ADMINISTRATION [None]
  - THROMBOSIS [None]
  - DYSPNOEA [None]
  - BACK PAIN [None]
  - RHEUMATOID ARTHRITIS [None]
  - PAIN IN EXTREMITY [None]
  - MALAISE [None]
  - CARDIAC ARREST [None]
